FAERS Safety Report 9261340 (Version 1)
Quarter: 2013Q1

REPORT INFORMATION
  Report Type: Spontaneous
  Country: US (occurrence: None)
  Receive Date: 20121212
  Receipt Date: 20121212
  Transmission Date: 20140127
  Serious: No
  Sender: FDA-Public Use
  Company Number: 1209USA002026

PATIENT
  Sex: 0

DRUGS (3)
  1. VICTRELIS [Suspect]
     Indication: HEPATITIS C
     Dates: start: 20120901
  2. REBETOL [Suspect]
     Indication: HEPATITIS C
     Dates: start: 20120802
  3. PEGASYS (INTERFERON ALFA-2A [Concomitant]

REACTIONS (10)
  - Disturbance in attention [None]
  - Anorectal discomfort [None]
  - Photosensitivity reaction [None]
  - White blood cell count decreased [None]
  - Headache [None]
  - Depression [None]
  - Rash [None]
  - Dysgeusia [None]
  - Anaemia [None]
  - Dysgeusia [None]
